FAERS Safety Report 9035779 (Version 1)
Quarter: 2013Q1

REPORT INFORMATION
  Report Type: Report from Study
  Country: US (occurrence: US)
  Receive Date: 20130129
  Receipt Date: 20130129
  Transmission Date: 20140127
  Serious: No
  Sender: FDA-Public Use
  Company Number: US-ABBOTT-12P-163-0926634-00

PATIENT
  Age: 58 Year
  Sex: Female

DRUGS (11)
  1. HUMIRA 40 MG/0.8 ML PEN [Suspect]
     Indication: PSORIATIC ARTHROPATHY
     Dates: start: 20120413
  2. METHOTREXATE [Concomitant]
     Indication: PRODUCT USED FOR UNKNOWN INDICATION
     Dosage: 2.5 MG X 6 TABS ONCE A WEEK
  3. LASIX [Concomitant]
     Indication: BLOOD PRESSURE
  4. PROCARDIA [Concomitant]
     Indication: HYPERTENSION
  5. OMEPRAZOLE [Concomitant]
     Indication: PROPHYLAXIS
  6. COUMADIN [Concomitant]
     Indication: THROMBOSIS
     Dosage: 3MG ONE DAY AND 4MG THE NEXT DAY
  7. FOLIC ACID [Concomitant]
     Indication: PRODUCT USED FOR UNKNOWN INDICATION
  8. SINGULAIR [Concomitant]
     Indication: ASTHMA
  9. SYMBICORT [Concomitant]
     Indication: ASTHMA
     Route: 055
  10. POTASSIUM [Concomitant]
     Indication: PRODUCT USED FOR UNKNOWN INDICATION
     Dosage: CONCURRENT WITH LASIX
  11. VITAMIN D [Concomitant]
     Indication: PRODUCT USED FOR UNKNOWN INDICATION

REACTIONS (4)
  - Headache [Unknown]
  - Injection site bruising [Not Recovered/Not Resolved]
  - Nausea [Unknown]
  - Nasal congestion [Unknown]
